FAERS Safety Report 8718402 (Version 2)
Quarter: 2012Q4

REPORT INFORMATION
  Report Type: 
  Country: DE (occurrence: DE)
  Receive Date: 20120810
  Receipt Date: 20121112
  Transmission Date: 20130627
  Serious: Yes (Other)
  Sender: FDA-Public Use
  Company Number: DE-BRISTOL-MYERS SQUIBB COMPANY-16834731

PATIENT
  Age: 60 Year
  Sex: Male
  Weight: 101 kg

DRUGS (3)
  1. YERVOY [Suspect]
     Indication: MALIGNANT MELANOMA
     Dosage: 12Jul2012
     Route: 042
     Dates: start: 20120704
  2. DACARBAZINE [Suspect]
     Indication: MALIGNANT MELANOMA
     Route: 042
     Dates: start: 20120621
  3. ONDANSETRON [Concomitant]
     Indication: NAUSEA
     Route: 048
     Dates: start: 20120621

REACTIONS (2)
  - Malignant neoplasm progression [Unknown]
  - Hepatic failure [Unknown]
